FAERS Safety Report 5753896-5 (Version None)
Quarter: 2008Q2

REPORT INFORMATION
  Report Type: 
  Country: None (occurrence: None)
  Receive Date: 20080530
  Receipt Date: 20080523
  Transmission Date: 20081010
  Serious: Yes (Hospitalization)
  Sender: FDA-Public Use
  Company Number: B0519775A

PATIENT
  Age: 79 Year
  Sex: Female

DRUGS (5)
  1. VALTREX [Suspect]
     Indication: HERPES ZOSTER
     Dosage: 500MG TWICE PER DAY
     Route: 048
     Dates: start: 20080413, end: 20080414
  2. ACYCLOVIR [Suspect]
     Indication: HERPES ZOSTER
     Dosage: 200MG PER DAY
     Route: 042
     Dates: start: 20080414, end: 20080416
  3. ARASENA-A [Concomitant]
     Indication: HERPES ZOSTER
     Route: 061
     Dates: start: 20080413, end: 20080429
  4. NAPROXEN [Concomitant]
     Indication: HERPES ZOSTER
     Dosage: 100MG THREE TIMES PER DAY
     Route: 048
     Dates: start: 20080414, end: 20080416
  5. FLUID REPLACEMENT [Concomitant]

REACTIONS (4)
  - BLOOD CREATININE INCREASED [None]
  - BLOOD UREA INCREASED [None]
  - HAEMATURIA [None]
  - RENAL FAILURE ACUTE [None]
